FAERS Safety Report 8616079-7 (Version None)
Quarter: 2012Q3

REPORT INFORMATION
  Report Type: 
  Country: None (occurrence: None)
  Receive Date: 20120823
  Receipt Date: 20120814
  Transmission Date: 20120928
  Serious: Yes (Hospitalization)
  Sender: FDA-Public Use
  Company Number: JP-PFIZER INC-2012178138

PATIENT
  Age: 88 Year
  Sex: Female
  Weight: 35.9 kg

DRUGS (16)
  1. BAPINEUZUMAB [Suspect]
     Dosage: BLINDED DOSE
     Route: 051
     Dates: start: 20120221, end: 20120221
  2. CELEBREX [Suspect]
     Indication: COMPRESSION FRACTURE
  3. REBAMIPIDE [Concomitant]
     Indication: PROPHYLAXIS AGAINST GASTROINTESTINAL ULCER
     Dosage: UNK
     Dates: start: 20110308
  4. BAPINEUZUMAB [Suspect]
     Indication: DEMENTIA ALZHEIMER'S TYPE
     Dosage: BLINDED DOSE
     Route: 051
     Dates: start: 20101130, end: 20101130
  5. BAPINEUZUMAB [Suspect]
     Dosage: BLINDED DOSE
     Route: 051
     Dates: start: 20110222, end: 20110222
  6. DONEPEZIL HYDROCHLORIDE [Concomitant]
     Indication: DEMENTIA ALZHEIMER'S TYPE
     Dosage: UNK
     Dates: start: 20120125
  7. AMLODIPINE BESILATE [Concomitant]
     Indication: HYPERTENSION
     Dosage: UNK
  8. BAPINEUZUMAB [Suspect]
     Dosage: BLINDED DOSE
     Route: 051
     Dates: start: 20110830, end: 20110830
  9. EXTRACT FORM CUTNEOUS TISSUE OF RABBIT INOCULATED WITH VACCINIA VIRUS [Concomitant]
     Indication: HERPES ZOSTER
     Dosage: UNK
     Dates: start: 20100709
  10. GOSHAJINKIGAN [Concomitant]
     Indication: HERPES ZOSTER
     Dosage: UNK
     Dates: start: 20100713
  11. BAPINEUZUMAB [Suspect]
     Dosage: BLINDED DOSE
     Route: 051
     Dates: start: 20110531, end: 20110531
  12. BAPINEUZUMAB [Suspect]
     Dosage: BLINDED DOSE
     Route: 051
     Dates: start: 20120522, end: 20120522
  13. BAPINEUZUMAB [Suspect]
     Dosage: BLINDED DOSE
     Route: 051
     Dates: start: 20111122, end: 20111122
  14. LIDOCAINE HYDROCHLORIDE [Concomitant]
     Indication: HERPES ZOSTER
     Dosage: UNK
     Dates: start: 20100709
  15. TAGAMET [Concomitant]
     Indication: PROPHYLAXIS AGAINST GASTROINTESTINAL ULCER
     Dosage: UNK
  16. CELEBREX [Suspect]
     Indication: OSTEOARTHRITIS
     Dosage: UNK
     Dates: start: 20110113

REACTIONS (1)
  - GASTRIC CANCER [None]
